FAERS Safety Report 9919445 (Version 1)
Quarter: 2014Q1

REPORT INFORMATION
  Report Type: Spontaneous
  Country: MX (occurrence: MX)
  Receive Date: 20140224
  Receipt Date: 20140224
  Transmission Date: 20141002
  Serious: Yes (Death, Hospitalization)
  Sender: FDA-Public Use
  Company Number: MX-JNJFOC-20140207274

PATIENT
  Sex: 0

DRUGS (3)
  1. LEVOFLOXACIN [Suspect]
     Indication: PNEUMONIA
     Dosage: FOR SEVEN DAYS
     Route: 042
  2. LEVOFLOXACIN [Suspect]
     Indication: PNEUMONIA
     Dosage: FOR 7 DAYS
     Route: 048
  3. OXYGEN SUPPLEMENT [Concomitant]
     Indication: DYSPNOEA
     Route: 065

REACTIONS (2)
  - Death [Fatal]
  - Treatment failure [Unknown]
